FAERS Safety Report 8202187-1 (Version None)
Quarter: 2012Q1

REPORT INFORMATION
  Report Type: 
  Country: None (occurrence: None)
  Receive Date: 20120312
  Receipt Date: 20120305
  Transmission Date: 20120608
  Serious: Yes (Hospitalization)
  Sender: FDA-Public Use
  Company Number: US-BAYER-2012-022803

PATIENT
  Age: 33 Year
  Sex: Female

DRUGS (3)
  1. AMBIEN [Concomitant]
     Dosage: 10 MG, QD
  2. PROZAC [Concomitant]
     Dosage: 40 MG, QD
  3. YAZ [Suspect]
     Indication: PRODUCT USED FOR UNKNOWN INDICATION

REACTIONS (1)
  - PULMONARY EMBOLISM [None]
